FAERS Safety Report 11985064 (Version 1)
Quarter: 2016Q1

REPORT INFORMATION
  Report Type: Spontaneous
  Country: US (occurrence: US)
  Receive Date: 20160201
  Receipt Date: 20160201
  Transmission Date: 20160526
  Serious: Yes (Other)
  Sender: FDA-Public Use
  Company Number: US-APOPHARMA USA, INC.-2016AP006048

PATIENT
  Age: 7 Month
  Sex: Male

DRUGS (6)
  1. TOPOTECAN [Concomitant]
     Active Substance: TOPOTECAN\TOPOTECAN HYDROCHLORIDE
     Indication: RETINOBLASTOMA
     Dosage: 0.2 MG, OTHER
     Route: 013
  2. NEOSYNEPHRINE [Concomitant]
     Active Substance: PHENYLEPHRINE HYDROCHLORIDE
     Indication: OEDEMA
  3. NEOSYNEPHRINE [Concomitant]
     Active Substance: PHENYLEPHRINE HYDROCHLORIDE
     Indication: RASH
  4. ALKERAN [Suspect]
     Active Substance: MELPHALAN
     Indication: RETINOBLASTOMA
     Dosage: 0.4 MG/KG, OTHER
     Route: 013
  5. EPINEPHRINE. [Concomitant]
     Active Substance: EPINEPHRINE
     Indication: VASOCONSTRICTION
     Route: 045
  6. NEOSYNEPHRINE [Concomitant]
     Active Substance: PHENYLEPHRINE HYDROCHLORIDE
     Indication: HYPERAEMIA
     Route: 045

REACTIONS (4)
  - Eyelid rash [Unknown]
  - Bronchospasm [Unknown]
  - Eyelid oedema [Unknown]
  - Eyelid ptosis [Unknown]
